FAERS Safety Report 6407859-7 (Version None)
Quarter: 2009Q4

REPORT INFORMATION
  Report Type: 
  Country: None (occurrence: None)
  Receive Date: 20091020
  Receipt Date: 20091012
  Transmission Date: 20100525
  Serious: Yes (Hospitalization)
  Sender: FDA-Public Use
  Company Number: US-ABBOTT-09P-163-0602214-00

PATIENT
  Sex: Female

DRUGS (18)
  1. BIAXIN [Suspect]
     Indication: MULTIPLE MYELOMA
     Dates: start: 20090723, end: 20090826
  2. REVLIMID [Suspect]
     Indication: MULTIPLE MYELOMA
     Dosage: DAILY 1-21, 28 DAYS CYCLE
     Route: 048
     Dates: start: 20090723, end: 20090826
  3. DECADRON [Suspect]
     Indication: MULTIPLE MYELOMA
     Dates: start: 20090723
  4. THALIDOMIDE [Suspect]
     Indication: MULTIPLE MYELOMA
     Dosage: 1-28 DAYS
     Route: 048
     Dates: start: 20090723, end: 20090826
  5. ASPIRIN [Concomitant]
     Indication: DRUG USE FOR UNKNOWN INDICATION
     Dosage: DAILY
     Route: 048
  6. TMP/SMX DS [Concomitant]
     Indication: DRUG USE FOR UNKNOWN INDICATION
     Dosage: 800/160MG DAILY
     Route: 048
  7. PRAVASTATIN [Concomitant]
     Indication: HYPERLIPIDAEMIA
     Dosage: QHS
     Route: 048
  8. OLMESARTAN MEDOXOMIL [Concomitant]
     Indication: HYPERTENSION
     Dosage: DAILY
     Route: 048
  9. OMEPRAZOLE [Concomitant]
     Indication: GASTROOESOPHAGEAL REFLUX DISEASE
     Dosage: DAILY
  10. SUCRALFATE [Concomitant]
     Indication: GASTROOESOPHAGEAL REFLUX DISEASE
     Route: 048
  11. ACETAMINOPHEN W/ CODEINE [Concomitant]
     Indication: DRUG USE FOR UNKNOWN INDICATION
     Dosage: 300MG/30MG Q4H PRN
  12. HEPARIN [Concomitant]
     Indication: DRUG USE FOR UNKNOWN INDICATION
  13. HEPARIN [Concomitant]
     Dosage: DAILY
  14. AVELOX [Concomitant]
     Indication: DRUG USE FOR UNKNOWN INDICATION
  15. ALBUTEROL [Concomitant]
     Indication: DRUG USE FOR UNKNOWN INDICATION
  16. PREDNISONE TAB [Concomitant]
     Indication: DRUG USE FOR UNKNOWN INDICATION
  17. STEROIDS [Concomitant]
     Indication: DRUG USE FOR UNKNOWN INDICATION
  18. PAROXETINE [Concomitant]
     Indication: DEPRESSION

REACTIONS (5)
  - DEEP VEIN THROMBOSIS [None]
  - HYPOTENSION [None]
  - PNEUMONIA [None]
  - RENAL FAILURE [None]
  - SEPSIS [None]
